FAERS Safety Report 7088683-1 (Version None)
Quarter: 2010Q4

REPORT INFORMATION
  Report Type: 
  Country: None (occurrence: None)
  Receive Date: 20101029
  Receipt Date: 20101015
  Transmission Date: 20110411
  Serious: Yes (Hospitalization)
  Sender: FDA-Public Use
  Company Number: 006703

PATIENT
  Sex: Female
  Weight: 98.8 kg

DRUGS (24)
  1. CERTOLIZUMAB PEGOL [Suspect]
     Indication: RHEUMATOID ARTHRITIS
     Dosage: SEE IMAGE
     Route: 058
     Dates: end: 20091202
  2. CERTOLIZUMAB PEGOL [Suspect]
     Indication: RHEUMATOID ARTHRITIS
     Dosage: SEE IMAGE
     Route: 058
     Dates: start: 20091216, end: 20100127
  3. CERTOLIZUMAB PEGOL [Suspect]
     Indication: RHEUMATOID ARTHRITIS
     Dosage: SEE IMAGE
     Route: 058
     Dates: start: 20090406
  4. CERTOLIZUMAB PEGOL [Suspect]
     Indication: RHEUMATOID ARTHRITIS
     Dosage: SEE IMAGE
     Route: 058
     Dates: start: 20100512
  5. METHOTREXATE [Concomitant]
  6. PLAQUENIL [Concomitant]
  7. PREDNISONE [Concomitant]
  8. DICLOFENAC SODIUM [Concomitant]
  9. PERCOCET [Concomitant]
  10. ZYRTEC [Concomitant]
  11. FOLIC ACID [Concomitant]
  12. BENAZEPRIL [Concomitant]
  13. HYDROCHLOROTHIAZIDE [Concomitant]
  14. PRILOSEC [Concomitant]
  15. CITRACAL + D [Concomitant]
  16. TYLENOL (CAPLET) [Concomitant]
  17. ALEVE [Concomitant]
  18. UNKNOWN [Concomitant]
  19. BENADRYL [Concomitant]
  20. FLEXERIL [Concomitant]
  21. ESTRACE [Concomitant]
  22. PROMETHAZINE [Concomitant]
  23. AMOXICILLIN [Concomitant]
  24. AZITHROMYCIN [Concomitant]

REACTIONS (9)
  - ATELECTASIS [None]
  - CARDIOMEGALY [None]
  - LYMPHADENOPATHY [None]
  - PLEURAL EFFUSION [None]
  - PNEUMONITIS [None]
  - PULMONARY GRANULOMA [None]
  - SINUS TACHYCARDIA [None]
  - THROAT IRRITATION [None]
  - UPPER-AIRWAY COUGH SYNDROME [None]
